FAERS Safety Report 9306111 (Version 3)
Quarter: 2013Q3

REPORT INFORMATION
  Report Type: Spontaneous
  Country: JP (occurrence: JP)
  Receive Date: 20130523
  Receipt Date: 20130904
  Transmission Date: 20140515
  Serious: Yes (Death, Other)
  Sender: FDA-Public Use
  Company Number: JP-CELGENEUS-087-21880-13052170

PATIENT
  Age: 63 Year
  Sex: Male

DRUGS (17)
  1. REVLIMID [Suspect]
     Indication: PLASMA CELL MYELOMA
     Dosage: 25 MILLIGRAM
     Route: 048
     Dates: start: 20101015
  2. REVLIMID [Suspect]
     Route: 048
     Dates: start: 201204
  3. LENADEX [Suspect]
     Indication: PLASMA CELL MYELOMA
     Dosage: 40 MILLIGRAM
     Route: 048
     Dates: start: 20101015
  4. DIFLUCAN [Concomitant]
     Indication: PROPHYLAXIS
     Route: 048
     Dates: start: 20101015
  5. BAKTAR [Concomitant]
     Indication: PROPHYLAXIS
     Route: 048
     Dates: start: 20101015, end: 20110103
  6. ZOVIRAX [Concomitant]
     Indication: PROPHYLAXIS
     Route: 048
     Dates: start: 20101015, end: 20101104
  7. ZOVIRAX [Concomitant]
     Route: 048
     Dates: start: 20101105, end: 20101207
  8. ZYLORIC [Concomitant]
     Indication: PROPHYLAXIS
     Route: 048
     Dates: start: 20101015, end: 20101227
  9. BARACLUDE [Concomitant]
     Indication: PROPHYLAXIS
     Route: 048
     Dates: start: 20101015
  10. MAGLAX [Concomitant]
     Indication: PROPHYLAXIS
     Route: 048
     Dates: start: 20101015, end: 20110114
  11. GASTER D [Concomitant]
     Indication: PROPHYLAXIS
     Dosage: 40 MILLIGRAM
     Route: 048
     Dates: start: 20101015, end: 20110114
  12. GASCON [Concomitant]
     Indication: PROPHYLAXIS
     Route: 048
     Dates: start: 20101015, end: 20110114
  13. BAYASPIRIN [Concomitant]
     Indication: PROPHYLAXIS
     Route: 048
     Dates: start: 20101015
  14. METHYCOBAL [Concomitant]
     Indication: NEUROPATHY PERIPHERAL
     Route: 048
     Dates: start: 20101015, end: 20120119
  15. GABAPEN [Concomitant]
     Indication: NEUROPATHY PERIPHERAL
     Route: 048
     Dates: start: 20110129
  16. SHAKUYAKU KANZO TO [Concomitant]
     Indication: MYALGIA
     Route: 048
     Dates: start: 20101124, end: 20110519
  17. GOSHA JINKI GAN [Concomitant]
     Indication: NERVE INJURY
     Route: 048
     Dates: start: 20110601, end: 20110929

REACTIONS (2)
  - Cardio-respiratory arrest [Fatal]
  - Chronic myeloid leukaemia [Not Recovered/Not Resolved]
